FAERS Safety Report 19955786 (Version 1)
Quarter: 2021Q4

REPORT INFORMATION
  Report Type: Spontaneous
  Country: FR (occurrence: FR)
  Receive Date: 20211014
  Receipt Date: 20211014
  Transmission Date: 20220303
  Serious: Yes (Other)
  Sender: FDA-Public Use
  Company Number: None

PATIENT
  Age: 85 Year
  Sex: Male

DRUGS (9)
  1. ATORVASTATIN [Suspect]
     Active Substance: ATORVASTATIN
     Indication: Cardiovascular event prophylaxis
     Dosage: UNK (INCONNUE)
     Route: 048
  2. CANDESARTAN [Suspect]
     Active Substance: CANDESARTAN
     Indication: Myocardial ischaemia
     Dosage: UNK (INCONNUE)
     Route: 048
  3. VERAPAMIL [Suspect]
     Active Substance: VERAPAMIL HYDROCHLORIDE
     Indication: Myocardial ischaemia
     Dosage: 240 MILLIGRAM, QD (240 MG, QD)
     Route: 048
  4. AVODART [Suspect]
     Active Substance: DUTASTERIDE
     Indication: Urinary retention
     Dosage: UNK (INCONNUE)
     Route: 048
  5. KARDEGIC [Suspect]
     Active Substance: ASPIRIN DL-LYSINE
     Indication: Cardiovascular event prophylaxis
     Dosage: UNK (POWDER FOR SOLUTION DRINKABLE IN SACHET-DOSE)
     Route: 048
  6. IMBRUVICA [Suspect]
     Active Substance: IBRUTINIB
     Indication: Chronic lymphocytic leukaemia
     Dosage: 1 DOSAGE FORM, QD
     Route: 048
     Dates: start: 201803
  7. ALFUZOSIN [Suspect]
     Active Substance: ALFUZOSIN
     Indication: Urinary retention
     Dosage: UNK (INCONNUE)
     Route: 048
  8. FUROSEMIDE [Suspect]
     Active Substance: FUROSEMIDE
     Indication: Myocardial ischaemia
     Dosage: UNK (INCONNUE)
     Route: 048
  9. HYDROCHLOROTHIAZIDE [Suspect]
     Active Substance: HYDROCHLOROTHIAZIDE
     Indication: Myocardial ischaemia
     Dosage: UNK (INCONNUE)
     Route: 048

REACTIONS (3)
  - Oedema peripheral [Not Recovered/Not Resolved]
  - Hyperkeratosis [Not Recovered/Not Resolved]
  - Lymphoedema [Not Recovered/Not Resolved]

NARRATIVE: CASE EVENT DATE: 20181201
